FAERS Safety Report 6892247-X (Version None)
Quarter: 2010Q3

REPORT INFORMATION
  Report Type: 
  Country: None (occurrence: None)
  Receive Date: 20100731
  Receipt Date: 20080304
  Transmission Date: 20110219
  Serious: No
  Sender: FDA-Public Use
  Company Number: US-PFIZER INC-2008021148

PATIENT
  Sex: Female
  Weight: 75 kg

DRUGS (3)
  1. SULFASALAZINE [Suspect]
     Indication: COLITIS ULCERATIVE
     Dates: start: 19790101
  2. ATENOLOL [Concomitant]
     Indication: HYPERTENSION
  3. ZOCOR [Concomitant]

REACTIONS (1)
  - OSTEOPOROSIS [None]
